FAERS Safety Report 7455595-0 (Version None)
Quarter: 2011Q2

REPORT INFORMATION
  Report Type: 
  Country: None (occurrence: None)
  Receive Date: 20110503
  Receipt Date: 20110426
  Transmission Date: 20111010
  Serious: Yes (Death)
  Sender: FDA-Public Use
  Company Number: US-GILEAD-2011-0037714

PATIENT
  Sex: Male
  Weight: 95.794 kg

DRUGS (3)
  1. LETAIRIS [Suspect]
     Indication: LUNG DISORDER
  2. LETAIRIS [Suspect]
     Indication: PULMONARY HYPERTENSION
     Route: 048
     Dates: start: 20101118, end: 20110318
  3. LETAIRIS [Suspect]
     Indication: FIBROSIS

REACTIONS (1)
  - RESPIRATORY FAILURE [None]
